FAERS Safety Report 4920474-7 (Version None)
Quarter: 2006Q1

REPORT INFORMATION
  Report Type: 
  Country: None (occurrence: None)
  Receive Date: 20060223
  Receipt Date: 20051012
  Transmission Date: 20060701
  Serious: Yes (Hospitalization, Disabling)
  Sender: FDA-Public Use
  Company Number: US-MERCK-0510USA07092

PATIENT
  Age: 34 Year
  Sex: Male
  Weight: 102 kg

DRUGS (5)
  1. VIOXX [Suspect]
     Indication: OSTEOARTHRITIS
     Route: 048
     Dates: start: 20011015, end: 20011113
  2. VIOXX [Suspect]
     Indication: JOINT INJURY
     Route: 048
     Dates: start: 20011015, end: 20011113
  3. ZYRTEC [Concomitant]
     Route: 065
  4. NAPROXEN [Concomitant]
     Indication: ARTHRALGIA
     Route: 065
     Dates: start: 20011001, end: 20011101
  5. NASACORT [Concomitant]
     Route: 065

REACTIONS (18)
  - ANXIETY DISORDER [None]
  - BLOOD CHOLESTEROL INCREASED [None]
  - BLOOD PRESSURE SYSTOLIC INCREASED [None]
  - CEREBRAL ISCHAEMIA [None]
  - CEREBROVASCULAR ACCIDENT [None]
  - CHOLECYSTECTOMY [None]
  - COMPLICATED MIGRAINE [None]
  - CYST [None]
  - DEPRESSION [None]
  - DISCOMFORT [None]
  - DYSPEPSIA [None]
  - GALLBLADDER DISORDER [None]
  - HYPERCHOLESTEROLAEMIA [None]
  - HYPERTENSION [None]
  - HYPERTRIGLYCERIDAEMIA [None]
  - LACUNAR INFARCTION [None]
  - MIGRAINE [None]
  - SARCOIDOSIS [None]
